FAERS Safety Report 7028676-3 (Version None)
Quarter: 2010Q4

REPORT INFORMATION
  Report Type: 
  Country: None (occurrence: None)
  Receive Date: 20101005
  Receipt Date: 20101004
  Transmission Date: 20110411
  Serious: Yes (Life-Threatening)
  Sender: FDA-Public Use
  Company Number: IT-SANOFI-AVENTIS-2010SA059257

PATIENT
  Age: 67 Year
  Sex: Female

DRUGS (2)
  1. ELOXATIN [Suspect]
     Route: 041
     Dates: start: 20100301, end: 20100301
  2. ELOXATIN [Suspect]
     Route: 041
     Dates: start: 20100818, end: 20100818

REACTIONS (6)
  - BLOOD PRESSURE IMMEASURABLE [None]
  - ERYTHEMA [None]
  - EXTRASYSTOLES [None]
  - MALAISE [None]
  - PARAESTHESIA [None]
  - THROAT TIGHTNESS [None]
